FAERS Safety Report 7555267-8 (Version None)
Quarter: 2011Q2

REPORT INFORMATION
  Report Type: 
  Country: None (occurrence: None)
  Receive Date: 20110617
  Receipt Date: 20110606
  Transmission Date: 20111010
  Serious: Yes (Other)
  Sender: FDA-Public Use
  Company Number: PHHY2010CA31053

PATIENT
  Sex: Female

DRUGS (1)
  1. ZOMETA [Suspect]
     Indication: BREAST CANCER
     Dosage: 4 MG, EVERY 6 MONTHS
     Route: 042
     Dates: start: 20090428, end: 20091023

REACTIONS (4)
  - MASTICATION DISORDER [None]
  - IMPAIRED HEALING [None]
  - TOOTH FRACTURE [None]
  - TOOTH DISORDER [None]
